FAERS Safety Report 20518951 (Version 1)
Quarter: 2022Q1

REPORT INFORMATION
  Report Type: Spontaneous
  Country: US (occurrence: US)
  Receive Date: 20220225
  Receipt Date: 20220225
  Transmission Date: 20220423
  Serious: No
  Sender: FDA-Public Use
  Company Number: US-NOVOPROD-779678

PATIENT
  Age: 61 Year
  Sex: Female

DRUGS (2)
  1. VICTOZA [Suspect]
     Active Substance: LIRAGLUTIDE
     Indication: Product used for unknown indication
     Dosage: UNK
     Route: 058
     Dates: start: 20191015, end: 20201103
  2. TYMLOS [Suspect]
     Active Substance: ABALOPARATIDE
     Indication: Product used for unknown indication
     Dosage: 80 ?G, QD
     Route: 058
     Dates: start: 201907, end: 20201103

REACTIONS (1)
  - Blood calcium increased [Recovered/Resolved]

NARRATIVE: CASE EVENT DATE: 20201103
